FAERS Safety Report 26184350 (Version 1)
Quarter: 2025Q4

REPORT INFORMATION
  Report Type: Spontaneous
  Country: US (occurrence: US)
  Receive Date: 20251222
  Receipt Date: 20251222
  Transmission Date: 20260118
  Serious: No
  Sender: SANOFI AVENTIS
  Company Number: US-SA-2025SA379870

PATIENT
  Age: 36 Year
  Sex: Female
  Weight: 79.37 kg

DRUGS (4)
  1. DUPIXENT [Suspect]
     Active Substance: DUPILUMAB
     Indication: Dermatitis allergic
     Dosage: 600 MG, 1X
     Route: 058
     Dates: start: 20251118, end: 20251118
  2. DUPIXENT [Suspect]
     Active Substance: DUPILUMAB
     Indication: Product used for unknown indication
     Dosage: 600 MG, 1X
     Route: 058
     Dates: start: 20251205, end: 20251205
  3. CLOBETASOL [Concomitant]
     Active Substance: CLOBETASOL
  4. PREDNISONE [Concomitant]
     Active Substance: PREDNISONE

REACTIONS (2)
  - Extra dose administered [Unknown]
  - Inappropriate schedule of product administration [Unknown]

NARRATIVE: CASE EVENT DATE: 20251201
